FAERS Safety Report 18241533 (Version 1)
Quarter: 2020Q3

REPORT INFORMATION
  Report Type: Spontaneous
  Country: DE (occurrence: DE)
  Receive Date: 20200908
  Receipt Date: 20200908
  Transmission Date: 20201103
  Serious: Yes (Other)
  Sender: FDA-Public Use
  Company Number: DE-009507513-2009DEU001565

PATIENT
  Sex: Male

DRUGS (2)
  1. KEYTRUDA [Suspect]
     Active Substance: PEMBROLIZUMAB
     Indication: LUNG ADENOCARCINOMA STAGE IV
     Dosage: UNK
     Dates: start: 20170629
  2. KEYTRUDA [Suspect]
     Active Substance: PEMBROLIZUMAB
     Dosage: UNK
     Dates: start: 201712

REACTIONS (5)
  - Immune-mediated hepatitis [Unknown]
  - Pleural effusion [Unknown]
  - Lung adenocarcinoma recurrent [Unknown]
  - Diabetes mellitus [Unknown]
  - Pneumonitis [Unknown]

NARRATIVE: CASE EVENT DATE: 2017
